FAERS Safety Report 5037565-5 (Version None)
Quarter: 2006Q2

REPORT INFORMATION
  Report Type: 
  Country: None (occurrence: None)
  Receive Date: 20060628
  Receipt Date: 20060623
  Transmission Date: 20061013
  Serious: Yes (Other)
  Sender: FDA-Public Use
  Company Number: US-GLAXOSMITHKLINE-A0610408A

PATIENT

DRUGS (2)
  1. COMBIVIR [Suspect]
     Indication: HIV INFECTION
     Dosage: 2TAB PER DAY
     Dates: start: 20060509
  2. VIRACEPT [Concomitant]
     Dates: start: 20060509

REACTIONS (3)
  - AUTOSOMAL CHROMOSOME ANOMALY [None]
  - DRUG EXPOSURE DURING PREGNANCY [None]
  - TRISOMY 21 [None]
